FAERS Safety Report 4512187-0 (Version None)
Quarter: 2004Q4

REPORT INFORMATION
  Report Type: 
  Country: None (occurrence: None)
  Receive Date: 20041129
  Receipt Date: 20041125
  Transmission Date: 20050328
  Serious: Yes (Hospitalization)
  Sender: FDA-Public Use
  Company Number: FR-ROCHE-387015

PATIENT
  Age: 36 Year
  Sex: Female

DRUGS (1)
  1. LOXEN [Suspect]
     Indication: TOCOLYSIS
     Route: 042
     Dates: start: 20041013, end: 20041016

REACTIONS (2)
  - ACUTE PULMONARY OEDEMA [None]
  - DRUG EXPOSURE DURING PREGNANCY [None]
